FAERS Safety Report 4659602-X (Version None)
Quarter: 2005Q2

REPORT INFORMATION
  Report Type: 
  Country: None (occurrence: None)
  Receive Date: 20050510
  Receipt Date: 20050429
  Transmission Date: 20051028
  Serious: Yes (Hospitalization)
  Sender: FDA-Public Use
  Company Number: 2005068275

PATIENT
  Age: 56 Year
  Sex: Female

DRUGS (4)
  1. XANAX [Suspect]
     Indication: ANXIETY
     Dosage: 2 MG (2 MG, 1 IN 1 D), ORAL
     Route: 048
     Dates: start: 20040618
  2. PREDNISOLONE             (PREDNSILONE) [Concomitant]
  3. PANTOPRAZOLE SODIUM [Concomitant]
  4. NITRAZEPAM [Concomitant]

REACTIONS (4)
  - DRY SKIN [None]
  - INSOMNIA [None]
  - NIGHTMARE [None]
  - PULMONARY HAEMORRHAGE [None]
